FAERS Safety Report 16757027 (Version 1)
Quarter: 2019Q3

REPORT INFORMATION
  Report Type: Report from Study
  Country: US (occurrence: US)
  Receive Date: 20190829
  Receipt Date: 20190829
  Transmission Date: 20191005
  Serious: Yes (Hospitalization)
  Sender: FDA-Public Use
  Company Number: US-EISAI MEDICAL RESEARCH-EC-2019-056239

PATIENT
  Age: 59 Year
  Sex: Male
  Weight: 71 kg

DRUGS (8)
  1. LENVIMA [Suspect]
     Active Substance: LENVATINIB
     Indication: HEPATOCELLULAR CARCINOMA
     Route: 048
     Dates: start: 201905, end: 201905
  2. LENVIMA [Suspect]
     Active Substance: LENVATINIB
     Route: 048
     Dates: start: 201908
  3. LISINOPRIL. [Concomitant]
     Active Substance: LISINOPRIL
  4. METOPROLOL. [Concomitant]
     Active Substance: METOPROLOL
  5. IBUPROFEN. [Concomitant]
     Active Substance: IBUPROFEN
  6. TYLENOL [Concomitant]
     Active Substance: ACETAMINOPHEN
  7. LENVIMA [Suspect]
     Active Substance: LENVATINIB
     Route: 048
     Dates: start: 2019, end: 201908
  8. MAGNESIUM [Concomitant]
     Active Substance: MAGNESIUM

REACTIONS (16)
  - Headache [Unknown]
  - Dizziness [Unknown]
  - Neck pain [Unknown]
  - Blood magnesium decreased [Unknown]
  - Muscle spasms [Unknown]
  - Rash [Unknown]
  - Vomiting [Unknown]
  - Gingival disorder [Unknown]
  - Pain in extremity [Unknown]
  - Gait disturbance [Unknown]
  - Seizure [Unknown]
  - Loss of consciousness [Unknown]
  - Nausea [Unknown]
  - Contusion [Unknown]
  - Blood pressure increased [Unknown]
  - Skin ulcer [Unknown]

NARRATIVE: CASE EVENT DATE: 201905
